FAERS Safety Report 8666533 (Version 3)
Quarter: 2012Q4

REPORT INFORMATION
  Report Type: 
  Country: US (occurrence: US)
  Receive Date: 20120716
  Receipt Date: 20121108
  Transmission Date: 20130627
  Serious: Yes (Life-Threatening, Hospitalization)
  Sender: FDA-Public Use
  Company Number: US-VIROPHARMA INCORPORATED-20120702CINRY3107

PATIENT
  Age: 20 Year
  Sex: Female
  Weight: 64.01 kg

DRUGS (3)
  1. CINRYZE (C1 ESTERASE INHIBITOR (HUMAN)) [Suspect]
     Indication: HEREDITARY ANGIOEDEMA
     Dates: start: 20120327
  2. FIRAZYR [Concomitant]
     Indication: HEREDITARY ANGIOEDEMA
     Dosage: UNKNOWN
     Route: 065
  3. UNSPECIFIED SEIZURE MEDICATION [Concomitant]
     Indication: CONVULSION
     Dosage: UNKNOWN
     Route: 065

REACTIONS (5)
  - Anaphylactic reaction [Recovered/Resolved]
  - Product quality issue [Recovered/Resolved]
  - Hereditary angioedema [Unknown]
  - Blood potassium abnormal [Recovered/Resolved]
  - Therapy regimen changed [Recovered/Resolved]
